FAERS Safety Report 14433802 (Version 14)
Quarter: 2020Q3

REPORT INFORMATION
  Report Type: Spontaneous
  Country: US (occurrence: US)
  Receive Date: 20180124
  Receipt Date: 20200825
  Transmission Date: 20201102
  Serious: Yes (Hospitalization)
  Sender: FDA-Public Use
  Company Number: US-ACTELION-A-NJ2018-165997

PATIENT
  Sex: Male
  Weight: 7.71 kg

DRUGS (5)
  1. TRACLEER [Suspect]
     Active Substance: BOSENTAN
     Indication: PULMONARY HYPERTENSION
     Dosage: 32 MG, BID
     Route: 048
  2. TRACLEER [Suspect]
     Active Substance: BOSENTAN
     Dosage: UNK
     Route: 048
  3. POTASSIUM CHLORIDE. [Concomitant]
     Active Substance: POTASSIUM CHLORIDE
  4. REVATIO [Concomitant]
     Active Substance: SILDENAFIL CITRATE
  5. REMODULIN [Suspect]
     Active Substance: TREPROSTINIL
     Indication: PRODUCT USED FOR UNKNOWN INDICATION
     Route: 065

REACTIONS (15)
  - Hypospadias [Unknown]
  - Catheter site related reaction [Unknown]
  - Parainfluenzae virus infection [Unknown]
  - Catheter site swelling [Unknown]
  - Respiratory tract infection [Unknown]
  - Insomnia [Unknown]
  - Metapneumovirus infection [Unknown]
  - Human bocavirus infection [Unknown]
  - Surgery [Unknown]
  - Restlessness [Unknown]
  - Diarrhoea [Unknown]
  - Respiratory syncytial virus infection [Unknown]
  - Urethral repair [Unknown]
  - Dehydration [Unknown]
  - Lung disorder [Unknown]
